FAERS Safety Report 9355539 (Version 2)
Quarter: 2013Q3

REPORT INFORMATION
  Report Type: Spontaneous
  Country: JP (occurrence: JP)
  Receive Date: 20130619
  Receipt Date: 20130717
  Transmission Date: 20140515
  Serious: Yes (Hospitalization, Other)
  Sender: FDA-Public Use
  Company Number: JP-009507513-1305JPN011765

PATIENT
  Age: 72 Year
  Sex: Male
  Weight: 54 kg

DRUGS (14)
  1. ESLAX INTRAVENOUS 50MG/5.0ML [Suspect]
     Indication: NEUROMUSCULAR BLOCKING THERAPY
     Dosage: 50MG (IN INTUBATION), 20MG/ H (CONTINUOUS INFUSION), 20MG (AFTER OUT OF THE ICU), DAILY DOSE UNKNOWN
     Route: 042
     Dates: start: 20130504, end: 20130504
  2. ESLAX INTRAVENOUS 50MG/5.0ML [Suspect]
     Dosage: 7 MICROGRAM PER KILOGRAM PER MINUTE
     Route: 042
     Dates: start: 20130504, end: 20130504
  3. ESLAX INTRAVENOUS 50MG/5.0ML [Suspect]
     Dosage: 20 MG, UNK
     Dates: start: 20130504, end: 20130504
  4. SEVOFLURANE [Suspect]
     Dosage: 1 %, QD, 3 H, FORMULATION: INH
     Route: 055
     Dates: start: 20130504, end: 20130504
  5. ULTIVA [Suspect]
     Dosage: 0.05-0.25, DAILY DOSE UNKNOWN
     Route: 042
     Dates: start: 20130504, end: 20130504
  6. CEFMETAZOLE SODIUM [Suspect]
     Dosage: 1 G, QD
     Route: 042
     Dates: start: 20130504, end: 20130504
  7. RAVONAL [Concomitant]
     Dosage: 300 MG, QD
     Route: 042
     Dates: start: 20130504, end: 20130504
  8. FENTANYL [Concomitant]
     Dosage: 50 MICROGRAM, 6 TIMES A DAY
     Route: 042
     Dates: start: 20130504, end: 20130504
  9. NEOSYNESIN [Concomitant]
     Dosage: TOTAL DAILY DOSE: 0.1 MG
     Route: 042
  10. DORMICUM (MIDAZOLAM) [Concomitant]
     Dosage: TOTAL DAILY DOSE 5 MG
     Route: 042
     Dates: start: 20130504, end: 20130504
  11. DORMICUM (MIDAZOLAM) [Concomitant]
     Dosage: DAILY DOSE UNKNOWN, 2MG-5MG/H
     Route: 042
     Dates: start: 20130505, end: 20130506
  12. DORMICUM (MIDAZOLAM) [Concomitant]
     Dosage: DAILY DOSE UNKNOWN, 2MG-5MG/H
     Route: 042
     Dates: start: 20130508, end: 20130510
  13. DORMICUM (MIDAZOLAM) [Concomitant]
     Dosage: DAILY DOSE UNKNOWN, 2MG-5MG/H
     Route: 042
     Dates: start: 20130512, end: 20130516
  14. BOSMIN (EPINEPHRINE) [Concomitant]
     Dosage: DAILY DOSE UNKNOWN
     Route: 065

REACTIONS (4)
  - Anaemia [Not Recovered/Not Resolved]
  - Cardiac failure [Recovering/Resolving]
  - Pneumonia [Recovering/Resolving]
  - Anaphylactic shock [Recovered/Resolved]
